FAERS Safety Report 8261866-0 (Version None)
Quarter: 2012Q1

REPORT INFORMATION
  Report Type: 
  Country: None (occurrence: None)
  Receive Date: 20120321
  Receipt Date: 20110309
  Transmission Date: 20120608
  Serious: Yes (Other)
  Sender: FDA-Public Use
  Company Number: 2011SP011244

PATIENT
  Age: 51 Year
  Sex: Female

DRUGS (1)
  1. PEG-INTRON [Suspect]
     Indication: PRODUCT USED FOR UNKNOWN INDICATION
     Dosage: 150 MCG; QW; SC
     Route: 058
     Dates: start: 20110201

REACTIONS (4)
  - MAJOR DEPRESSION [None]
  - PRURITUS [None]
  - RASH [None]
  - MENTAL DISORDER [None]
